FAERS Safety Report 5176154-9 (Version None)
Quarter: 2006Q4

REPORT INFORMATION
  Report Type: 
  Country: None (occurrence: None)
  Receive Date: 20061215
  Receipt Date: 20060626
  Transmission Date: 20070319
  Serious: No
  Sender: FDA-Public Use
  Company Number: US-AMGEN-KDL184511

PATIENT
  Sex: Female

DRUGS (2)
  1. ENBREL [Suspect]
     Indication: RHEUMATOID ARTHRITIS
     Route: 058
     Dates: start: 20060530
  2. PLACQUENIL [Concomitant]
     Dates: start: 20050301

REACTIONS (5)
  - BALANCE DISORDER [None]
  - FATIGUE [None]
  - HYPOAESTHESIA ORAL [None]
  - INCREASED TENDENCY TO BRUISE [None]
  - INJECTION SITE BRUISING [None]
